FAERS Safety Report 11433581 (Version 1)
Quarter: 2015Q3

REPORT INFORMATION
  Report Type: Spontaneous
  Country: US (occurrence: US)
  Receive Date: 20150831
  Receipt Date: 20150831
  Transmission Date: 20151125
  Serious: No
  Sender: FDA-Public Use
  Company Number: US-009507513-1508USA013347

PATIENT
  Age: 48 Year
  Sex: Male

DRUGS (8)
  1. CYANOCOBALAMIN. [Concomitant]
     Active Substance: CYANOCOBALAMIN
  2. METAXALONE. [Concomitant]
     Active Substance: METAXALONE
  3. TYLENOL [Concomitant]
     Active Substance: ACETAMINOPHEN
  4. OMEGA-3 MARINE TRIGLYCERIDES [Concomitant]
     Active Substance: FISH OIL
  5. CALCIUM (UNSPECIFIED) [Concomitant]
     Active Substance: CALCIUM
  6. INTRON A [Suspect]
     Active Substance: INTERFERON ALFA-2B
     Dosage: 1.5 MILLION IU THREE TIMES WEEKLY
     Dates: start: 201504
  7. CHOLECALCIFEROL [Concomitant]
     Active Substance: CHOLECALCIFEROL
  8. NIACIN. [Concomitant]
     Active Substance: NIACIN

REACTIONS (1)
  - Alopecia [Not Recovered/Not Resolved]

NARRATIVE: CASE EVENT DATE: 201507
